FAERS Safety Report 6642005-6 (Version None)
Quarter: 2010Q1

REPORT INFORMATION
  Report Type: 
  Country: None (occurrence: None)
  Receive Date: 20100319
  Receipt Date: 20100310
  Transmission Date: 20100710
  Serious: Yes (Other)
  Sender: FDA-Public Use
  Company Number: AU-NAPPMUNDI-GBR-2010-0006247

PATIENT
  Age: 38 Year
  Sex: Female

DRUGS (4)
  1. MORPHINE SULFATE [Suspect]
     Indication: ANALGESIC THERAPY
     Dosage: 640 MG, DAILY
     Route: 042
  2. THIETHYLPERAZINE [Concomitant]
     Indication: ANTIEMETIC SUPPORTIVE CARE
  3. INDOMETHACIN [Concomitant]
     Indication: ANALGESIC INTERVENTION SUPPORTIVE THERAPY
  4. PREDNISOLONE [Concomitant]
     Indication: STEROID THERAPY

REACTIONS (1)
  - MYOCLONUS [None]
